FAERS Safety Report 6691788-8 (Version None)
Quarter: 2010Q2

REPORT INFORMATION
  Report Type: 
  Country: None (occurrence: None)
  Receive Date: 20100422
  Receipt Date: 20090818
  Transmission Date: 20101027
  Serious: No
  Sender: FDA-Public Use
  Company Number: US-ASTRAZENECA-2009SE08803

PATIENT
  Age: 80 Year
  Sex: Female

DRUGS (3)
  1. TOPROL-XL [Suspect]
     Route: 048
  2. COLASAL [Concomitant]
     Indication: COLITIS ULCERATIVE
  3. ALIGN OTC [Concomitant]

REACTIONS (1)
  - COLITIS ULCERATIVE [None]
